FAERS Safety Report 17055503 (Version 2)
Quarter: 2019Q4

REPORT INFORMATION
  Report Type: Spontaneous
  Country: US (occurrence: US)
  Receive Date: 20191120
  Receipt Date: 20191129
  Transmission Date: 20200122
  Serious: Yes (Hospitalization, Other)
  Sender: FDA-Public Use
  Company Number: US-009507513-1911USA006739

PATIENT
  Age: 64 Year
  Sex: Female
  Weight: 115.8 kg

DRUGS (2)
  1. KEYTRUDA [Suspect]
     Active Substance: PEMBROLIZUMAB
     Indication: UTERINE CANCER
     Dosage: 200 MILLIGRAM, Q3W
     Route: 042
     Dates: start: 201910, end: 201911
  2. LENVATINIB MESYLATE [Suspect]
     Active Substance: LENVATINIB MESYLATE
     Indication: UTERINE CANCER
     Dosage: UNK
     Dates: start: 201910

REACTIONS (1)
  - Acute kidney injury [Recovering/Resolving]

NARRATIVE: CASE EVENT DATE: 20191113
